FAERS Safety Report 8474543-8 (Version None)
Quarter: 2012Q2

REPORT INFORMATION
  Report Type: 
  Country: None (occurrence: None)
  Receive Date: 20120628
  Receipt Date: 20120619
  Transmission Date: 20120825
  Serious: Yes (Hospitalization, Other)
  Sender: FDA-Public Use
  Company Number: US-BAYER-2012-062437

PATIENT
  Age: 30 Year
  Sex: Female
  Weight: 107.48 kg

DRUGS (3)
  1. NSAID'S [Concomitant]
  2. PROZAC [Concomitant]
     Indication: POSTPARTUM DEPRESSION
     Dosage: UNK, WEEKLY
     Route: 048
     Dates: start: 20030529
  3. YASMIN [Suspect]

REACTIONS (3)
  - PULMONARY EMBOLISM [None]
  - PULMONARY INFARCTION [None]
  - DEEP VEIN THROMBOSIS [None]
